FAERS Safety Report 10705163 (Version 1)
Quarter: 2015Q1

REPORT INFORMATION
  Report Type: Spontaneous
  Country: US (occurrence: None)
  Receive Date: 20150108
  Receipt Date: 20150108
  Transmission Date: 20150721
  Serious: Yes (Other)
  Sender: FDA-Public Use
  Company Number: ABR_01915_2014

PATIENT
  Age: 60 Year
  Sex: Male

DRUGS (12)
  1. EDARBYCLOR [Suspect]
     Active Substance: AZILSARTAN KAMEDOXOMIL\CHLORTHALIDONE
     Indication: PRODUCT USED FOR UNKNOWN INDICATION
     Dates: start: 20141221, end: 20141221
  2. ASPIRIN. [Concomitant]
     Active Substance: ASPIRIN
  3. COMIGAN [Concomitant]
  4. LANTUS [Concomitant]
     Active Substance: INSULIN GLARGINE
  5. VYTORIN [Concomitant]
     Active Substance: EZETIMIBE\SIMVASTATIN
  6. VICTOZA [Concomitant]
     Active Substance: LIRAGLUTIDE
  7. OMEGA [Concomitant]
     Active Substance: CONVALLARIA MAJALIS\CRATAEGUS LAEVIGATA LEAF\PROXYPHYLLINE
  8. TRILIPIX [Concomitant]
     Active Substance: FENOFIBRIC ACID
  9. MULTIVITAMINS [Concomitant]
     Active Substance: VITAMINS
  10. METFORMIN [Concomitant]
     Active Substance: METFORMIN HYDROCHLORIDE
  11. BYSTOLIC [Concomitant]
     Active Substance: NEBIVOLOL HYDROCHLORIDE
  12. TEKTURNA [Concomitant]
     Active Substance: ALISKIREN HEMIFUMARATE

REACTIONS (1)
  - Hypersensitivity [None]

NARRATIVE: CASE EVENT DATE: 20141221
